FAERS Safety Report 9976199 (Version 1)
Quarter: 2014Q1

REPORT INFORMATION
  Report Type: Report from Study
  Country: US (occurrence: US)
  Receive Date: 20140306
  Receipt Date: 20140306
  Transmission Date: 20141002
  Serious: No
  Sender: FDA-Public Use
  Company Number: US-ABBVIE-13P-163-1164192-00

PATIENT
  Sex: Female

DRUGS (12)
  1. HUMIRA [Suspect]
     Indication: PSORIATIC ARTHROPATHY
     Dates: start: 2005, end: 2009
  2. ENBREL [Suspect]
     Indication: PSORIATIC ARTHROPATHY
     Dates: start: 2009
  3. LOSARTAN [Concomitant]
     Indication: HYPERTENSION
     Dosage: DAILY
  4. NEXIUM [Concomitant]
     Indication: GASTROOESOPHAGEAL REFLUX DISEASE
  5. REGLAN [Concomitant]
     Indication: GASTROOESOPHAGEAL REFLUX DISEASE
  6. ALLOPURINOL [Concomitant]
     Indication: GOUT
     Dosage: DAILY
  7. TRAMADOL [Concomitant]
     Indication: PAIN
  8. BABY ASPIRIN [Concomitant]
     Indication: PRODUCT USED FOR UNKNOWN INDICATION
     Dosage: DAILY
  9. SYMBICORT [Concomitant]
     Indication: ASTHMA
  10. ALBUTEROL [Concomitant]
     Indication: ASTHMA
  11. ALBUTEROL [Concomitant]
     Indication: ASTHMA
     Dosage: DAILY
  12. ONGLAYZA [Concomitant]
     Indication: GLUCOSE URINE PRESENT
     Dosage: DAILY

REACTIONS (5)
  - Mobility decreased [Not Recovered/Not Resolved]
  - Rash [Not Recovered/Not Resolved]
  - Drug ineffective [Not Recovered/Not Resolved]
  - Alopecia [Not Recovered/Not Resolved]
  - Arthralgia [Not Recovered/Not Resolved]
